FAERS Safety Report 12339676 (Version 1)
Quarter: 2016Q2

REPORT INFORMATION
  Report Type: Spontaneous
  Country: DE (occurrence: DE)
  Receive Date: 20160505
  Receipt Date: 20160505
  Transmission Date: 20160815
  Serious: Yes (Hospitalization)
  Sender: FDA-Public Use
  Company Number: DE-UCBSA-2016016299

PATIENT
  Sex: Female
  Weight: 80 kg

DRUGS (7)
  1. L-THYROXIN [Suspect]
     Active Substance: LEVOTHYROXINE SODIUM
     Indication: PRODUCT USED FOR UNKNOWN INDICATION
     Dosage: 3/4 TABL./ THERAPEUTIC DOSAGE
     Route: 048
     Dates: start: 20160430, end: 20160430
  2. OMEPRAZOLE. [Suspect]
     Active Substance: OMEPRAZOLE
     Indication: PRODUCT USED FOR UNKNOWN INDICATION
     Dosage: 20 MG, TOTAL, 2 TABL/ BY MISTAKE
     Route: 048
     Dates: start: 20160430, end: 20160430
  3. LAMOTRIGINE. [Suspect]
     Active Substance: LAMOTRIGINE
     Indication: PRODUCT USED FOR UNKNOWN INDICATION
     Dosage: 200 MG, TOTAL, 2 TABL/ BY MISTAKE (100)
     Route: 048
     Dates: start: 20160430, end: 20160430
  4. KEPPRA [Suspect]
     Active Substance: LEVETIRACETAM
     Indication: PRODUCT USED FOR UNKNOWN INDICATION
     Dosage: 750 MG, TOTAL, 1.5 TABLET (500) BY MISTAKE
     Route: 048
     Dates: start: 20160430, end: 20160430
  5. VENLAFAXIN [Suspect]
     Active Substance: VENLAFAXINE HYDROCHLORIDE
     Indication: PRODUCT USED FOR UNKNOWN INDICATION
     Dosage: 150 MG, TOTAL, 75, 2 TABL/THERAPEUTIC  DOSE
     Route: 048
     Dates: start: 20160430, end: 20160430
  6. RISPERDON [Suspect]
     Active Substance: RISPERIDONE
     Indication: PRODUCT USED FOR UNKNOWN INDICATION
     Dosage: 1 MG, TOTAL; 1 TABL./THERAPEUTIC DOSE (1)
     Route: 048
     Dates: start: 20160430, end: 20160430
  7. FUROSEMID [Suspect]
     Active Substance: FUROSEMIDE
     Indication: PRODUCT USED FOR UNKNOWN INDICATION
     Dosage: 40 MG, TOTAL; 1 TABL./THERAPEUTIC DOSE (40)
     Route: 048
     Dates: start: 20160430, end: 20160430

REACTIONS (1)
  - Accidental exposure to product [Unknown]

NARRATIVE: CASE EVENT DATE: 20160430
